FAERS Safety Report 10055721 (Version 2)
Quarter: 2014Q2

REPORT INFORMATION
  Report Type: Spontaneous
  Country: NL (occurrence: NL)
  Receive Date: 20140403
  Receipt Date: 20140408
  Transmission Date: 20141212
  Serious: Yes (Life-Threatening)
  Sender: FDA-Public Use
  Company Number: NL-009507513-1403NLD013191

PATIENT
  Age: 66 Year
  Sex: Female
  Weight: 61 kg

DRUGS (1)
  1. LOSARTAN POTASSIUM [Suspect]
     Indication: HYPERTENSION
     Dosage: 25 MG, QD,1 X 25 MGR = 1 TIME A DAY 1 PIECE(S), EXTRA INFORMATION 1 X 25MG
     Route: 048
     Dates: start: 2005, end: 20140203

REACTIONS (2)
  - Cardiac failure [Recovering/Resolving]
  - Muscle spasms [Recovering/Resolving]
